FAERS Safety Report 4885627-5 (Version None)
Quarter: 2005Q4

REPORT INFORMATION
  Report Type: 
  Country: None (occurrence: None)
  Receive Date: 20051220
  Receipt Date: 20050406
  Transmission Date: 20060501
  Serious: Yes (Hospitalization, Other)
  Sender: FDA-Public Use
  Company Number: HQWYE785907APR05

PATIENT
  Age: 17 Year
  Sex: Female
  Weight: 48.12 kg

DRUGS (5)
  1. EFFEXOR XR [Suspect]
     Indication: GENERALISED ANXIETY DISORDER
     Dosage: ORAL
     Route: 048
     Dates: start: 20050323, end: 20050323
  2. EFFEXOR XR [Suspect]
     Indication: MAJOR DEPRESSION
     Dosage: ORAL
     Route: 048
     Dates: start: 20050323, end: 20050323
  3. EFFEXOR XR [Suspect]
     Indication: SOCIAL PHOBIA
     Dosage: ORAL
     Route: 048
     Dates: start: 20050323, end: 20050323
  4. AMBIEN [Suspect]
     Dates: start: 20050323, end: 20050323
  5. DEPO-PROVERA SUSPENSION/INJ [Concomitant]

REACTIONS (2)
  - INTENTIONAL OVERDOSE [None]
  - SUICIDE ATTEMPT [None]
